FAERS Safety Report 11452110 (Version 1)
Quarter: 2015Q3

REPORT INFORMATION
  Report Type: Spontaneous
  Country: US (occurrence: US)
  Receive Date: 20150903
  Receipt Date: 20150903
  Transmission Date: 20151125
  Serious: No
  Sender: FDA-Public Use
  Company Number: US-CELGENEUS-USA-2015066966

PATIENT
  Sex: Male

DRUGS (2)
  1. OTEZLA [Suspect]
     Active Substance: APREMILAST
     Indication: PSORIASIS
     Route: 048
  2. REUMOPHAN [Concomitant]
     Indication: PRODUCT USED FOR UNKNOWN INDICATION
     Route: 065

REACTIONS (6)
  - Lethargy [Unknown]
  - Weight decreased [Unknown]
  - Fatigue [Unknown]
  - Depression [Unknown]
  - Insomnia [Unknown]
  - Stress at work [Unknown]

NARRATIVE: CASE EVENT DATE: 2015
